FAERS Safety Report 17849324 (Version 1)
Quarter: 2020Q2

REPORT INFORMATION
  Report Type: Spontaneous
  Country: US (occurrence: US)
  Receive Date: 20200601
  Receipt Date: 20200601
  Transmission Date: 20200714
  Serious: Yes (Disabling, Other)
  Sender: FDA-Public Use
  Company Number: None

PATIENT
  Age: 55 Year
  Sex: Male
  Weight: 141 kg

DRUGS (12)
  1. ACETAMINOPHEN 650 MG [Concomitant]
     Active Substance: ACETAMINOPHEN
     Dates: start: 20200529, end: 20200529
  2. PANTOPRAZOLE 40 MG IV [Concomitant]
     Active Substance: PANTOPRAZOLE SODIUM
     Dates: start: 20200525
  3. PREDNISONE. [Concomitant]
     Active Substance: PREDNISONE
     Dates: start: 20200524, end: 20200528
  4. TOCILUZUMAB 800 MG [Concomitant]
     Dates: start: 20200529
  5. VANCOMYCIN [Concomitant]
     Active Substance: VANCOMYCIN
     Dates: start: 20200525, end: 20200528
  6. ALBUTEROL. [Concomitant]
     Active Substance: ALBUTEROL
     Dates: start: 20200525, end: 20200601
  7. AZITHROMYCIN ANHYDROUS. [Concomitant]
     Active Substance: AZITHROMYCIN ANHYDROUS
     Dates: start: 20200528, end: 20200528
  8. PIPERACILLIN AND TAZOBACTAM [Concomitant]
     Active Substance: PIPERACILLIN SODIUM\TAZOBACTAM SODIUM
     Dates: start: 20200528, end: 20200529
  9. FENTANYL. [Concomitant]
     Active Substance: FENTANYL
     Dates: start: 20200528, end: 20200528
  10. REMDESIVIR. [Suspect]
     Active Substance: REMDESIVIR
     Indication: COVID-19
     Route: 041
     Dates: start: 20200528, end: 20200531
  11. COLCHICINE. [Concomitant]
     Active Substance: COLCHICINE
     Dates: start: 20200527, end: 20200528
  12. HYDROCORTISONE 50 MG Q8H [Concomitant]
     Dates: start: 20200529, end: 20200530

REACTIONS (6)
  - Prerenal failure [None]
  - Creatinine renal clearance decreased [None]
  - Therapy interrupted [None]
  - Acute kidney injury [None]
  - Blood creatinine increased [None]
  - Oliguria [None]

NARRATIVE: CASE EVENT DATE: 20200531
